FAERS Safety Report 10481752 (Version 1)
Quarter: 2014Q3

REPORT INFORMATION
  Report Type: Report from Study
  Country: US (occurrence: US)
  Receive Date: 20140929
  Receipt Date: 20140929
  Transmission Date: 20150326
  Serious: Yes (Other)
  Sender: FDA-Public Use
  Company Number: PHEH2014US018927

PATIENT
  Sex: Male

DRUGS (1)
  1. GLEEVEC [Suspect]
     Active Substance: IMATINIB MESYLATE
     Indication: CHRONIC MYELOID LEUKAEMIA
     Dosage: 400 MG, QD
     Route: 048
     Dates: start: 201009

REACTIONS (7)
  - Gastric dilatation [Unknown]
  - Asthenia [Unknown]
  - Feeling abnormal [Unknown]
  - Weight decreased [Unknown]
  - Diabetes mellitus [Unknown]
  - Hypotonia [Unknown]
  - Vision blurred [Unknown]
